FAERS Safety Report 6375139-4 (Version None)
Quarter: 2009Q3

REPORT INFORMATION
  Report Type: 
  Country: None (occurrence: None)
  Receive Date: 20090924
  Receipt Date: 20090910
  Transmission Date: 20100115
  Serious: Yes (Hospitalization)
  Sender: FDA-Public Use
  Company Number: AU-MYLANLABS-2009S1015921

PATIENT
  Age: 47 Year
  Sex: Male

DRUGS (7)
  1. CYTARABINE [Suspect]
     Indication: ACUTE MYELOID LEUKAEMIA
     Dosage: TWO 3-HOUR INFUSIONS ON DAYS 1, 3, 5, + 7.
     Route: 041
  2. IDARUBICIN HCL [Suspect]
     Indication: ACUTE MYELOID LEUKAEMIA
     Dosage: ON DAYS 1-3
     Route: 040
  3. ETOPOSIDE [Suspect]
     Indication: ACUTE MYELOID LEUKAEMIA
     Dosage: ONE 30-MINUTE INFUSION ON DAYS 1-7
     Route: 041
  4. TROPISETRON [Concomitant]
     Indication: PROPHYLAXIS OF NAUSEA AND VOMITING
     Route: 042
  5. DEXAMETHASONE [Concomitant]
     Indication: PROPHYLAXIS OF NAUSEA AND VOMITING
     Route: 042
  6. ALLOPURINOL [Concomitant]
     Indication: PROPHYLAXIS
  7. DEXAMETHASONE [Concomitant]
     Indication: PROPHYLAXIS
     Route: 047

REACTIONS (4)
  - HYPERBILIRUBINAEMIA [None]
  - HYPOTENSION [None]
  - NEUTROPENIA [None]
  - RESPIRATORY DISORDER [None]
